FAERS Safety Report 10512548 (Version 3)
Quarter: 2014Q4

REPORT INFORMATION
  Report Type: Report from Study
  Country: DE (occurrence: DE)
  Receive Date: 20141011
  Receipt Date: 20141022
  Transmission Date: 20150528
  Serious: Yes (Hospitalization)
  Sender: FDA-Public Use
  Company Number: DE-AMGEN-DEUCT2014070454

PATIENT
  Age: 75 Year
  Sex: Male
  Weight: 77 kg

DRUGS (7)
  1. DEXAMETHASON                       /00016001/ [Concomitant]
     Active Substance: DEXAMETHASONE
     Dosage: UNK
     Dates: start: 20140825
  2. 5 FU [Concomitant]
     Active Substance: FLUOROURACIL
     Indication: OESOPHAGEAL SQUAMOUS CELL CARCINOMA METASTATIC
     Dosage: 1925 MG, CYCLICAL
     Route: 042
     Dates: start: 20140827
  3. MOVICOL                            /01749801/ [Concomitant]
     Dosage: UNK
     Dates: start: 20140825
  4. CISPLATIN. [Concomitant]
     Active Substance: CISPLATIN
     Indication: OESOPHAGEAL SQUAMOUS CELL CARCINOMA METASTATIC
     Dosage: 190 MG, CYCLICAL
     Route: 042
     Dates: start: 20140827
  5. DUROGESIC [Concomitant]
     Active Substance: FENTANYL
     Dosage: UNK
     Dates: start: 20140830
  6. PANITUMUMAB [Suspect]
     Active Substance: PANITUMUMAB
     Indication: OESOPHAGEAL SQUAMOUS CELL CARCINOMA METASTATIC
     Dosage: 650 MG, CYCLICAL
     Route: 042
     Dates: start: 20140827
  7. ONDANSETRON                        /00955302/ [Concomitant]
     Dosage: UNK
     Dates: start: 20140825

REACTIONS (1)
  - Vomiting [Not Recovered/Not Resolved]

NARRATIVE: CASE EVENT DATE: 20140827
